FAERS Safety Report 5444587-9 (Version None)
Quarter: 2007Q3

REPORT INFORMATION
  Report Type: 
  Country: None (occurrence: None)
  Receive Date: 20070829
  Receipt Date: 20070815
  Transmission Date: 20080115
  Serious: Yes (Hospitalization)
  Sender: FDA-Public Use
  Company Number: WAES 0705USA00089

PATIENT
  Age: 48 Year
  Sex: Female

DRUGS (3)
  1. SINGULAIR [Suspect]
     Indication: ASTHMA
     Dosage: 7 MG/DAILY IV
     Route: 042
     Dates: start: 20070425, end: 20070425
  2. SUMILU [THERAPY SPECIFIED] [Concomitant]
  3. SODIUM CHLORIDE [Concomitant]

REACTIONS (6)
  - BACTERIAL INFECTION [None]
  - BODY TEMPERATURE DECREASED [None]
  - BRONCHITIS [None]
  - CHILLS [None]
  - HEART RATE INCREASED [None]
  - LYMPH NODE PAIN [None]
